FAERS Safety Report 7402689-1 (Version None)
Quarter: 2011Q2

REPORT INFORMATION
  Report Type: 
  Country: None (occurrence: None)
  Receive Date: 20110408
  Receipt Date: 20110404
  Transmission Date: 20111010
  Serious: Yes (Other)
  Sender: FDA-Public Use
  Company Number: FR-ROCHE-758808

PATIENT
  Sex: Female

DRUGS (4)
  1. ROACTEMRA [Suspect]
     Indication: RHEUMATOID ARTHRITIS
     Route: 042
     Dates: start: 20100517, end: 20110101
  2. ROACTEMRA [Suspect]
     Route: 042
     Dates: start: 20110225
  3. METHOTREXATE [Suspect]
     Route: 065
  4. METHOTREXATE [Suspect]
     Indication: RHEUMATOID ARTHRITIS
     Route: 065

REACTIONS (1)
  - CYTOLYTIC HEPATITIS [None]
